FAERS Safety Report 6938971-1 (Version None)
Quarter: 2010Q3

REPORT INFORMATION
  Report Type: 
  Country: None (occurrence: None)
  Receive Date: 20100824
  Receipt Date: 20100816
  Transmission Date: 20110219
  Serious: Yes (Hospitalization)
  Sender: FDA-Public Use
  Company Number: KR-ELI_LILLY_AND_COMPANY-KR201008004599

PATIENT
  Sex: Male
  Weight: 63.3 kg

DRUGS (8)
  1. PEMETREXED [Suspect]
     Indication: NON-SMALL CELL LUNG CANCER
     Dosage: 500 MG/M2, UNK
     Route: 042
     Dates: start: 20080909
  2. FOLIC ACID [Concomitant]
     Dosage: 1 MG, DAILY (1/D)
     Route: 048
     Dates: start: 20080903
  3. VITAMIN B-12 [Concomitant]
     Dosage: 1 MG, UNKNOWN
     Route: 030
     Dates: start: 20080903, end: 20080903
  4. DEXAMETHASONE [Concomitant]
     Dosage: 15 MG, DAILY (1/D)
     Route: 042
     Dates: start: 20080909, end: 20081001
  5. TRIDOL [Concomitant]
     Indication: PAIN
     Dates: start: 20080626
  6. GASTROPYLORE [Concomitant]
     Indication: SUPPLEMENTATION THERAPY
     Dates: start: 20080909
  7. AMITRIPTYLINE HCL [Concomitant]
     Indication: ANTIDEPRESSANT THERAPY
     Dates: start: 20080909
  8. CHLORPHENIRAMINE MALEATE [Concomitant]
     Indication: COUGH
     Dates: start: 20081001

REACTIONS (3)
  - COUGH [None]
  - DYSPNOEA [None]
  - PYREXIA [None]
